FAERS Safety Report 11256128 (Version 1)
Quarter: 2015Q3

REPORT INFORMATION
  Report Type: Spontaneous
  Country: US (occurrence: US)
  Receive Date: 20150709
  Receipt Date: 20150709
  Transmission Date: 20151125
  Serious: No
  Sender: FDA-Public Use
  Company Number: US-VIIV HEALTHCARE LIMITED-US2014GSK047191

PATIENT
  Sex: Male

DRUGS (2)
  1. ANTIRETROVIRAL MEDICATIONS [Concomitant]
     Active Substance: UNSPECIFIED INGREDIENT
     Indication: HIV INFECTION
  2. EPZICOM [Suspect]
     Active Substance: ABACAVIR SULFATE\LAMIVUDINE
     Indication: HIV INFECTION
     Dosage: 300 MG, U

REACTIONS (2)
  - Visual acuity reduced [Unknown]
  - Vision blurred [Unknown]
